FAERS Safety Report 5471491-2 (Version None)
Quarter: 2007Q3

REPORT INFORMATION
  Report Type: 
  Country: None (occurrence: None)
  Receive Date: 20070928
  Receipt Date: 20061114
  Transmission Date: 20080115
  Serious: No
  Sender: FDA-Public Use
  Company Number: US-BRISTOL-MYERS SQUIBB COMPANY-13577895

PATIENT
  Age: 68 Year
  Sex: Female
  Weight: 71 kg

DRUGS (7)
  1. DEFINITY [Suspect]
     Indication: STRESS ECHOCARDIOGRAM
     Route: 042
  2. LIPITOR [Concomitant]
  3. ASPIRIN [Concomitant]
  4. LOPRESSOR [Concomitant]
  5. PLAVIX [Concomitant]
  6. ALTACE [Concomitant]
  7. IMDUR [Concomitant]

REACTIONS (1)
  - BACK PAIN [None]
